FAERS Safety Report 5718072-0 (Version None)
Quarter: 2008Q2

REPORT INFORMATION
  Report Type: 
  Country: None (occurrence: None)
  Receive Date: 20080425
  Receipt Date: 20080416
  Transmission Date: 20081010
  Serious: Yes (Other)
  Sender: FDA-Public Use
  Company Number: US-MERCK-0804USA03589

PATIENT
  Age: 56 Year
  Sex: Male

DRUGS (6)
  1. SINGULAIR [Suspect]
     Indication: ASTHMA
     Route: 048
     Dates: start: 20071201, end: 20080405
  2. LOTREL [Concomitant]
     Route: 065
  3. ATENOLOL [Concomitant]
     Route: 065
  4. HYDROCHLOROTHIAZIDE [Concomitant]
     Route: 065
  5. XANAX [Concomitant]
     Route: 065
  6. ADVAIR HFA [Concomitant]
     Route: 065

REACTIONS (6)
  - ABNORMAL DREAMS [None]
  - ASTHENIA [None]
  - DEPRESSION [None]
  - FATIGUE [None]
  - INSOMNIA [None]
  - SUICIDAL IDEATION [None]
